FAERS Safety Report 21583121 (Version 1)
Quarter: 2022Q4

REPORT INFORMATION
  Report Type: Spontaneous
  Country: US (occurrence: None)
  Receive Date: 20221110
  Receipt Date: 20221110
  Transmission Date: 20230113
  Serious: Yes (Life-Threatening, Other)
  Sender: FDA-Public Use
  Company Number: None

PATIENT
  Age: 67 Year
  Sex: Male

DRUGS (1)
  1. IOHEXOL [Suspect]
     Active Substance: IOHEXOL
     Dosage: 350 MG  ONCE IV
     Route: 042
     Dates: start: 20220810, end: 20220810

REACTIONS (3)
  - Obstructive airways disorder [None]
  - Anaphylactic reaction [None]
  - Contrast media reaction [None]

NARRATIVE: CASE EVENT DATE: 20220810
